FAERS Safety Report 12038945 (Version 1)
Quarter: 2016Q1

REPORT INFORMATION
  Report Type: Spontaneous
  Country: US (occurrence: None)
  Receive Date: 20160205
  Receipt Date: 20160205
  Transmission Date: 20160526
  Serious: No
  Sender: FDA-Public Use
  Company Number: None

PATIENT

DRUGS (1)
  1. CYCLOPHOSPHAMIDE BAXTER HEALTHCARE CORPORATION [Suspect]
     Active Substance: CYCLOPHOSPHAMIDE
     Dosage: INJECTABLE, INJECTION, 1 GRAM, SINGLE DOSE VIAL

REACTIONS (1)
  - Physical product label issue [None]
